FAERS Safety Report 7770064-6 (Version None)
Quarter: 2011Q3

REPORT INFORMATION
  Report Type: 
  Country: None (occurrence: None)
  Receive Date: 20110922
  Receipt Date: 20100929
  Transmission Date: 20111222
  Serious: No
  Sender: FDA-Public Use
  Company Number: US-ASTRAZENECA-2010SE45798

PATIENT
  Age: 57 Year
  Sex: Female

DRUGS (5)
  1. AMBIEN [Concomitant]
  2. ZOLOFT [Concomitant]
  3. SEROQUEL XR [Suspect]
     Indication: MAJOR DEPRESSION
     Route: 048
     Dates: start: 20100901, end: 20100901
  4. TRAZODONE HCL [Concomitant]
  5. KLONOPIN [Concomitant]

REACTIONS (2)
  - RASH [None]
  - URTICARIA [None]
